FAERS Safety Report 12420708 (Version 1)
Quarter: 2016Q2

REPORT INFORMATION
  Report Type: Spontaneous
  Country: BR (occurrence: BR)
  Receive Date: 20160531
  Receipt Date: 20160531
  Transmission Date: 20160815
  Serious: Yes (Other)
  Sender: FDA-Public Use
  Company Number: BR-PFIZER INC-2016274451

PATIENT
  Age: 84 Year
  Sex: Female

DRUGS (3)
  1. DIOVAN [Concomitant]
     Active Substance: VALSARTAN
     Indication: BLOOD PRESSURE MEASUREMENT
     Dosage: 1 TABLET, DAILY
     Route: 048
     Dates: start: 2006, end: 2016
  2. LYRICA [Suspect]
     Active Substance: PREGABALIN
     Indication: ARTHRALGIA
     Dosage: 2 TABLETS (STRENGTH 75 MG), DAILY
     Route: 048
     Dates: start: 20160509, end: 20160510
  3. SYNTHROID [Concomitant]
     Active Substance: LEVOTHYROXINE SODIUM
     Indication: THYROID DISORDER
     Dosage: 1 TABLET, DAILY
     Route: 048
     Dates: start: 2010, end: 2016

REACTIONS (7)
  - Hypersomnia [Unknown]
  - Abasia [Unknown]
  - Feeling abnormal [Unknown]
  - Feeling drunk [Unknown]
  - Fear [Unknown]
  - Dysstasia [Unknown]
  - Product use issue [Unknown]
